FAERS Safety Report 9115608 (Version 1)
Quarter: 2013Q1

REPORT INFORMATION
  Report Type: Spontaneous
  Country: US (occurrence: US)
  Receive Date: 20130225
  Receipt Date: 20130225
  Transmission Date: 20140127
  Serious: Yes (Other)
  Sender: FDA-Public Use
  Company Number: US-BRISTOL-MYERS SQUIBB COMPANY-16349094

PATIENT
  Age: 47 Year
  Sex: Female

DRUGS (1)
  1. KENALOG-10 INJ [Suspect]
     Indication: LUMBAR SPINAL STENOSIS
     Dosage: KENALOG-10-INJ 10 MG/ML
     Route: 008
     Dates: start: 20120106

REACTIONS (9)
  - Hypersensitivity [Not Recovered/Not Resolved]
  - Headache [Unknown]
  - Pain [Unknown]
  - Dyspepsia [Unknown]
  - Tremor [Unknown]
  - Feeling abnormal [Unknown]
  - Eating disorder [Unknown]
  - Nausea [Unknown]
  - Drug ineffective [Unknown]
